FAERS Safety Report 9039536 (Version 1)
Quarter: 2013Q1

REPORT INFORMATION
  Report Type: Other
  Country: GB (occurrence: GB)
  Receive Date: 20130129
  Receipt Date: 20130129
  Transmission Date: 20140127
  Serious: Yes (Other)
  Sender: FDA-Public Use
  Company Number: GB-WATSON-2013-01272

PATIENT
  Age: 49 Year
  Sex: Female
  Weight: 94 kg

DRUGS (1)
  1. DOXYCYCLINE (UNKNOWN) [Suspect]
     Indication: PRODUCT USED FOR UNKNOWN INDICATION
     Dosage: UNKNOWN
     Route: 065

REACTIONS (4)
  - Fatigue [Recovering/Resolving]
  - Polycythaemia [Recovered/Resolved]
  - Haematocrit increased [Recovered/Resolved]
  - Malaise [Recovering/Resolving]
